FAERS Safety Report 14390804 (Version 7)
Quarter: 2022Q4

REPORT INFORMATION
  Report Type: Report from Study
  Country: JP (occurrence: None)
  Receive Date: 20180116
  Receipt Date: 20221018
  Transmission Date: 20230112
  Serious: Yes (Hospitalization, Other)
  Sender: FDA-Public Use
  Company Number: JP-ROCHE-2051436

PATIENT
  Age: 48 Year
  Sex: Male
  Weight: 71.4 kg

DRUGS (6)
  1. ATEZOLIZUMAB [Suspect]
     Active Substance: ATEZOLIZUMAB
     Indication: Renal cell carcinoma
     Dosage: MOST RECENT DOSE OF BLINDED ATEZOLIZUMAB PRIOR TO DRUG INDUCED LIVER INJURY AND PHARYNGEAL ABSCESS O
     Route: 041
     Dates: start: 20170526
  2. IRBESARTAN [Concomitant]
     Active Substance: IRBESARTAN
     Route: 048
     Dates: start: 201611
  3. PRAVASTATIN SODIUM [Concomitant]
     Active Substance: PRAVASTATIN SODIUM
     Route: 048
     Dates: start: 201611, end: 20180202
  4. CALONAL [Concomitant]
     Active Substance: ACETAMINOPHEN
     Indication: Upper respiratory tract infection
     Route: 048
     Dates: start: 20180103, end: 20180104
  5. LOXOPROFEN SODIUM [Concomitant]
     Active Substance: LOXOPROFEN SODIUM
     Indication: Upper respiratory tract infection
     Route: 048
     Dates: start: 20180105, end: 20180106
  6. PL [Concomitant]
     Active Substance: ACETAMINOPHEN\CAFFEINE\PROMETHAZINE\SALICYLAMIDE
     Indication: Upper respiratory tract infection
     Route: 048
     Dates: start: 20180105, end: 20180106

REACTIONS (2)
  - Pharyngeal abscess [Recovered/Resolved]
  - Drug-induced liver injury [Recovered/Resolved]

NARRATIVE: CASE EVENT DATE: 20180105
